FAERS Safety Report 9625357 (Version 1)
Quarter: 2013Q4

REPORT INFORMATION
  Report Type: Spontaneous
  Country: US (occurrence: None)
  Receive Date: 20131015
  Receipt Date: 20131015
  Transmission Date: 20140711
  Serious: Yes (Hospitalization)
  Sender: FDA-Public Use
  Company Number: None

PATIENT
  Age: 66 Year
  Sex: Male
  Weight: 91.4 kg

DRUGS (1)
  1. HYDROCHLOROTHIAZIDE / LISINOPRIL [Suspect]
     Indication: HYPERTENSION
     Dates: start: 20121114, end: 20130829

REACTIONS (4)
  - Dysphagia [None]
  - Wheezing [None]
  - Discomfort [None]
  - Angioedema [None]
